FAERS Safety Report 14228347 (Version 1)
Quarter: 2017Q4

REPORT INFORMATION
  Report Type: Spontaneous
  Country: US (occurrence: None)
  Receive Date: 20171124
  Receipt Date: 20171124
  Transmission Date: 20180321
  Serious: No
  Sender: FDA-Public Use
  Company Number: None

PATIENT
  Sex: Male

DRUGS (1)
  1. IMATINIB 400MG SUN PHARMA [Suspect]
     Active Substance: IMATINIB
     Indication: BREAST CANCER
     Route: 048
     Dates: start: 20170406

REACTIONS (2)
  - Peripheral swelling [None]
  - Pain in extremity [None]
